FAERS Safety Report 9660861 (Version 4)
Quarter: 2014Q1

REPORT INFORMATION
  Report Type: Report from Study
  Country: PR (occurrence: PR)
  Receive Date: 20131031
  Receipt Date: 20140120
  Transmission Date: 20141002
  Serious: Yes (Life-Threatening, Other)
  Sender: FDA-Public Use
  Company Number: PR-ABBVIE-13P-131-1161536-00

PATIENT
  Age: 42 Year
  Sex: Female
  Weight: 85.35 kg

DRUGS (6)
  1. HUMIRA [Suspect]
     Indication: PRODUCT USED FOR UNKNOWN INDICATION
     Route: 058
     Dates: start: 201206, end: 201210
  2. HUMIRA [Suspect]
     Route: 058
     Dates: start: 201210
  3. METHOTREXATE [Concomitant]
     Indication: RHEUMATOID ARTHRITIS
     Dosage: 2 TABLETS FRIDAYS AND SATURDAYS
     Route: 048
     Dates: start: 201112
  4. METHOTREXATE [Concomitant]
     Dates: start: 2012
  5. FOLIC ACID [Concomitant]
     Indication: VITAMIN SUPPLEMENTATION
     Route: 048
     Dates: start: 201210
  6. SYNTHROID [Concomitant]
     Indication: PRODUCT USED FOR UNKNOWN INDICATION
     Route: 048
     Dates: start: 1994

REACTIONS (13)
  - Intestinal mass [Not Recovered/Not Resolved]
  - Neoplasm [Not Recovered/Not Resolved]
  - Gallbladder oedema [Unknown]
  - Thyroid neoplasm [Not Recovered/Not Resolved]
  - Cutaneous lupus erythematosus [Unknown]
  - Abdominal pain [Not Recovered/Not Resolved]
  - Vitamin D deficiency [Unknown]
  - Gastritis [Not Recovered/Not Resolved]
  - Irritable bowel syndrome [Unknown]
  - Gallbladder disorder [Unknown]
  - Weight decreased [Unknown]
  - Abdominal pain [Recovered/Resolved]
  - Pyrexia [Recovered/Resolved]
